FAERS Safety Report 10220062 (Version 1)
Quarter: 2014Q2

REPORT INFORMATION
  Report Type: Spontaneous
  Country: GB (occurrence: GB)
  Receive Date: 20140605
  Receipt Date: 20140605
  Transmission Date: 20141212
  Serious: Yes (Disabling)
  Sender: FDA-Public Use
  Company Number: GB-PFIZER INC-2014153696

PATIENT
  Age: 28 Year
  Sex: Female
  Weight: 60.9 kg

DRUGS (2)
  1. VENLAFAXINE HCL [Suspect]
     Dosage: UNK
     Dates: start: 20140501
  2. ETONOGESTREL [Concomitant]
     Dosage: UNK
     Dates: start: 20140227

REACTIONS (4)
  - Burning sensation [Recovered/Resolved]
  - Headache [Unknown]
  - Asthenia [Unknown]
  - Feeling drunk [Unknown]
